FAERS Safety Report 7426657-9 (Version None)
Quarter: 2011Q2

REPORT INFORMATION
  Report Type: 
  Country: None (occurrence: None)
  Receive Date: 20110420
  Receipt Date: 20110102
  Transmission Date: 20111010
  Serious: No
  Sender: FDA-Public Use
  Company Number: US-TEVA-262134USA

PATIENT
  Sex: Female
  Weight: 102.15 kg

DRUGS (3)
  1. PLAN B ONE-STEP [Suspect]
     Indication: POST COITAL CONTRACEPTION
     Dosage: 1.5 MILLIGRAM;
     Route: 048
     Dates: start: 20101223, end: 20101223
  2. LOESTRIN 24 FE [Concomitant]
     Indication: CONTRACEPTION
     Route: 048
     Dates: start: 20080101
  3. AMOXICILLIN [Concomitant]
     Indication: ANTIBIOTIC PROPHYLAXIS

REACTIONS (1)
  - BREAST TENDERNESS [None]
